FAERS Safety Report 13713463 (Version 1)
Quarter: 2017Q3

REPORT INFORMATION
  Report Type: Report from Study
  Country: GB (occurrence: GB)
  Receive Date: 20170704
  Receipt Date: 20170704
  Transmission Date: 20171127
  Serious: No
  Sender: FDA-Public Use
  Company Number: GB-SHIRE-GB201710546

PATIENT
  Age: 6 Year
  Sex: Female

DRUGS (4)
  1. VPRIV [Suspect]
     Active Substance: VELAGLUCERASE ALFA
     Indication: GAUCHER^S DISEASE TYPE I
     Dosage: 2000 IU, 1X/2WKS (FORTNIGHTLY)
     Route: 041
  2. EMLA [Concomitant]
     Active Substance: LIDOCAINE\PRILOCAINE
     Indication: PRODUCT USED FOR UNKNOWN INDICATION
     Dosage: UNK UNK, 1X/2WKS
     Route: 061
  3. HEPARIN [Concomitant]
     Active Substance: HEPARIN SODIUM
     Indication: CATHETER MANAGEMENT
     Dosage: 5 ML, 1X/2WKS
     Route: 042
  4. VPRIV [Suspect]
     Active Substance: VELAGLUCERASE ALFA
     Dosage: 1200 IU,, ALTERNATING WITH 1600 IU,  UNKNOWN
     Route: 041

REACTIONS (5)
  - Epistaxis [Unknown]
  - Pyrexia [Unknown]
  - Psychomotor hyperactivity [Unknown]
  - Varicella [Unknown]
  - Contusion [Unknown]

NARRATIVE: CASE EVENT DATE: 2017
